FAERS Safety Report 16432886 (Version 1)
Quarter: 2019Q2

REPORT INFORMATION
  Report Type: Spontaneous
  Country: US (occurrence: US)
  Receive Date: 20190614
  Receipt Date: 20190614
  Transmission Date: 20190711
  Serious: No
  Sender: FDA-Public Use
  Company Number: US-JNJFOC-20190529825

PATIENT
  Sex: Female
  Weight: 104.33 kg

DRUGS (3)
  1. INVEGA SUSTENNA [Suspect]
     Active Substance: PALIPERIDONE PALMITATE
     Indication: PSYCHOTIC DISORDER
     Route: 030
  2. INVEGA SUSTENNA [Suspect]
     Active Substance: PALIPERIDONE PALMITATE
     Indication: AFFECTIVE DISORDER
     Route: 030
  3. WELLBUTRIN [Concomitant]
     Active Substance: BUPROPION HYDROCHLORIDE
     Indication: SMOKING CESSATION THERAPY
     Route: 065

REACTIONS (7)
  - Skin irritation [Not Recovered/Not Resolved]
  - Apathy [Recovered/Resolved]
  - Injection site mass [Not Recovered/Not Resolved]
  - Skin atrophy [Not Recovered/Not Resolved]
  - Weight increased [Recovered/Resolved]
  - Memory impairment [Not Recovered/Not Resolved]
  - Fungal infection [Not Recovered/Not Resolved]
